FAERS Safety Report 4489766-2 (Version None)
Quarter: 2004Q4

REPORT INFORMATION
  Report Type: 
  Country: None (occurrence: None)
  Receive Date: 20041101
  Receipt Date: 20040928
  Transmission Date: 20050328
  Serious: Yes (Disabling)
  Sender: FDA-Public Use
  Company Number: PHBS2004JP13021

PATIENT
  Age: 58 Year
  Sex: Female
  Weight: 46 kg

DRUGS (5)
  1. VOLTAREN [Suspect]
     Indication: INTRA-CEREBRAL ANEURYSM OPERATION
     Dosage: 25 MG, ONCE/SINGLE
     Route: 054
     Dates: start: 20040927, end: 20040927
  2. GASTER [Concomitant]
     Indication: GASTRIC ULCER
     Dosage: 1 DF/DAY
     Route: 042
     Dates: start: 20040926
  3. CEFAZOLIN SODIUM [Concomitant]
     Indication: INFECTION PROPHYLAXIS
     Dosage: 2 G/DAY
     Route: 042
     Dates: start: 20040926, end: 20041001
  4. ALEVIATIN [Concomitant]
     Indication: CONVULSION PROPHYLAXIS
     Dosage: 250 MG/DAY
     Route: 042
  5. NITROGLYCERIN [Concomitant]
     Indication: HYPERTENSION
     Route: 042
     Dates: start: 20040926, end: 20040926

REACTIONS (8)
  - APHASIA [None]
  - BLOOD PRESSURE IMMEASURABLE [None]
  - BLOOD PRESSURE SYSTOLIC DECREASED [None]
  - CEREBRAL INFARCTION [None]
  - DEPRESSED LEVEL OF CONSCIOUSNESS [None]
  - HEMIPLEGIA [None]
  - SHOCK [None]
  - SOMNOLENCE [None]
